FAERS Safety Report 7090484-5 (Version None)
Quarter: 2010Q4

REPORT INFORMATION
  Report Type: 
  Country: None (occurrence: None)
  Receive Date: 20101012
  Receipt Date: 20100910
  Transmission Date: 20110411
  Serious: No
  Sender: FDA-Public Use
  Company Number: US-001293

PATIENT
  Sex: Male
  Weight: 112 kg

DRUGS (2)
  1. KUVAN [Suspect]
     Indication: PHENYLKETONURIA
     Dosage: (2400 MG QD ORAL)
     Route: 048
  2. NUTRIENTS WITHOUT PHENYLALANINE [Concomitant]

REACTIONS (2)
  - CONSTIPATION [None]
  - HAEMORRHOIDS [None]
